FAERS Safety Report 9933500 (Version 2)
Quarter: 2014Q1

REPORT INFORMATION
  Report Type: Report from Study
  Country: US (occurrence: US)
  Receive Date: 20140228
  Receipt Date: 20140228
  Transmission Date: 20141002
  Serious: No
  Sender: FDA-Public Use
  Company Number: US-MYLANLABS-2013S1021615

PATIENT
  Age: 16 Year
  Sex: Male
  Weight: 63.96 kg

DRUGS (1)
  1. AMNESTEEM CAPSULES [Suspect]
     Indication: ACNE
     Route: 048
     Dates: start: 20130812, end: 20130923

REACTIONS (8)
  - Confusional state [Not Recovered/Not Resolved]
  - Amnesia [Not Recovered/Not Resolved]
  - Depression [Not Recovered/Not Resolved]
  - Aggression [Not Recovered/Not Resolved]
  - Anger [Not Recovered/Not Resolved]
  - Personality change [Not Recovered/Not Resolved]
  - Pain [Not Recovered/Not Resolved]
  - Abnormal behaviour [Not Recovered/Not Resolved]
